FAERS Safety Report 6714259-9 (Version None)
Quarter: 2010Q2

REPORT INFORMATION
  Report Type: 
  Country: None (occurrence: None)
  Receive Date: 20100506
  Receipt Date: 20090610
  Transmission Date: 20101027
  Serious: No
  Sender: FDA-Public Use
  Company Number: US-BAUSCH-2009BL002933

PATIENT
  Age: 30 Year
  Sex: Female

DRUGS (2)
  1. LOTEMAX [Suspect]
     Indication: POSTOPERATIVE CARE
     Route: 047
     Dates: start: 20090604
  2. OFLOXACIN OPHTHALMIC SOLUTION 0.3% [Concomitant]
     Indication: POSTOPERATIVE CARE
     Route: 047
     Dates: start: 20090604, end: 20090607

REACTIONS (1)
  - MADAROSIS [None]
